FAERS Safety Report 7323226-6 (Version None)
Quarter: 2011Q1

REPORT INFORMATION
  Report Type: 
  Country: None (occurrence: None)
  Receive Date: 20110301
  Receipt Date: 20110218
  Transmission Date: 20110831
  Serious: Yes (Life-Threatening, Other)
  Sender: FDA-Public Use
  Company Number: JP-SANOFI-AVENTIS-2011SA008629

PATIENT
  Age: 81 Year
  Sex: Male

DRUGS (10)
  1. BACILLUS SUBTILIS/STREPTOCOCCUS FAECALIS [Concomitant]
     Dates: start: 20100829
  2. HIRUDOID [Concomitant]
     Dates: start: 20101118, end: 20110105
  3. MAGNESIUM OXIDE [Concomitant]
     Dates: start: 20100802
  4. DEXAMETHASONE SODIUM PHOSPHATE [Concomitant]
     Dates: start: 20101119, end: 20101209
  5. LENDORMIN [Concomitant]
     Dates: start: 20100801
  6. ELPLAT [Suspect]
     Route: 041
     Dates: start: 20101209, end: 20101209
  7. ELPLAT [Suspect]
     Indication: RECTAL CANCER RECURRENT
     Route: 041
     Dates: start: 20101118, end: 20101118
  8. XELODA [Suspect]
     Indication: RECTAL CANCER RECURRENT
     Route: 048
     Dates: start: 20101118, end: 20101223
  9. SODIUM PICOSULFATE [Concomitant]
     Dates: start: 20100801
  10. AVASTIN [Suspect]
     Indication: RECTAL CANCER RECURRENT
     Route: 041
     Dates: start: 20101209, end: 20101209

REACTIONS (3)
  - RECTAL ULCER [None]
  - SHOCK [None]
  - RECTAL HAEMORRHAGE [None]
